FAERS Safety Report 5850525-7 (Version None)
Quarter: 2008Q3

REPORT INFORMATION
  Report Type: 
  Country: None (occurrence: None)
  Receive Date: 20080820
  Receipt Date: 20080808
  Transmission Date: 20090109
  Serious: Yes (Hospitalization)
  Sender: FDA-Public Use
  Company Number: NL-RANBAXY-2008RR-17192

PATIENT

DRUGS (4)
  1. ACETAMINOPHEN [Suspect]
     Indication: PYREXIA
     Dosage: 75 MG/KG, QD
  2. VALPROATE SODIUM [Suspect]
     Indication: MYOCLONIC EPILEPSY
  3. CLOBAZAM [Concomitant]
  4. STIRIPENTOL [Concomitant]

REACTIONS (2)
  - COAGULOPATHY [None]
  - LIVER INJURY [None]
